FAERS Safety Report 10576244 (Version 1)
Quarter: 2014Q4

REPORT INFORMATION
  Report Type: Spontaneous
  Country: US (occurrence: US)
  Receive Date: 20141111
  Receipt Date: 20141111
  Transmission Date: 20150529
  Serious: No
  Sender: FDA-Public Use
  Company Number: US-PFIZER INC-2014307725

PATIENT
  Age: 78 Year
  Sex: Female

DRUGS (1)
  1. SUTENT [Suspect]
     Active Substance: SUNITINIB MALATE
     Indication: RENAL CANCER
     Dosage: 12.5 MG, 1X/DAY
     Route: 048
     Dates: start: 20140105

REACTIONS (3)
  - Drug hypersensitivity [Unknown]
  - Pharyngeal oedema [Unknown]
  - Infection [Unknown]

NARRATIVE: CASE EVENT DATE: 20141105
